FAERS Safety Report 8533054-1 (Version None)
Quarter: 2012Q2

REPORT INFORMATION
  Report Type: 
  Country: None (occurrence: None)
  Receive Date: 20120412
  Receipt Date: 20100709
  Transmission Date: 20120825
  Serious: Yes (Hospitalization)
  Sender: FDA-Public Use
  Company Number: PHHY2010US45164

PATIENT
  Age: 59 Year
  Sex: Female

DRUGS (7)
  1. REVLIMID [Suspect]
     Indication: MULTIPLE MYELOMA
     Dosage: 25 MG DAILY FOR 21 DAYS, ORAL 20 MG DAILY FOR 21 DAYS, ORAL
     Route: 048
     Dates: start: 20100415
  2. REVLIMID [Suspect]
     Indication: MULTIPLE MYELOMA
     Dosage: 25 MG DAILY FOR 21 DAYS, ORAL 20 MG DAILY FOR 21 DAYS, ORAL
     Route: 048
     Dates: start: 20100601
  3. LEVAQUIN [Concomitant]
  4. AREDIA [Suspect]
     Dosage: 90 MG 60 MG MONTHLY
     Dates: start: 20100501
  5. PREDNISONE TAB [Concomitant]
  6. VICODIN [Concomitant]
  7. COUGH SYRUP (ANTIMONY POTASSIUM TARTRATE, OPIUM TINCTURE, PAPAVER SOMN [Concomitant]

REACTIONS (11)
  - DYSPNOEA [None]
  - ABDOMINAL PAIN UPPER [None]
  - PYREXIA [None]
  - PAIN [None]
  - BACK PAIN [None]
  - MUSCLE SPASMS [None]
  - CONSTIPATION [None]
  - MUSCULOSKELETAL PAIN [None]
  - MUSCULOSKELETAL CHEST PAIN [None]
  - UPPER RESPIRATORY TRACT INFECTION [None]
  - COUGH [None]
